FAERS Safety Report 7124145-0 (Version None)
Quarter: 2010Q4

REPORT INFORMATION
  Report Type: 
  Country: None (occurrence: None)
  Receive Date: 20101126
  Receipt Date: 20101115
  Transmission Date: 20110411
  Serious: Yes (Hospitalization)
  Sender: FDA-Public Use
  Company Number: PHHY2010FR63470

PATIENT
  Sex: Female
  Weight: 87 kg

DRUGS (5)
  1. RASILEZ HCT [Suspect]
     Indication: HYPERTENSION
     Dosage: ONE TABLET PER DAY
     Route: 048
     Dates: start: 20100610, end: 20100630
  2. FORMOTEROL FUMARATE [Concomitant]
  3. NOVOPULMON [Concomitant]
  4. XANAX [Concomitant]
  5. XALATAN [Concomitant]

REACTIONS (2)
  - CONFUSIONAL STATE [None]
  - HYPONATRAEMIA [None]
